FAERS Safety Report 18532429 (Version 1)
Quarter: 2020Q4

REPORT INFORMATION
  Report Type: Spontaneous
  Country: US (occurrence: US)
  Receive Date: 20201123
  Receipt Date: 20201123
  Transmission Date: 20210114
  Serious: No
  Sender: FDA-Public Use
  Company Number: US-AUROBINDO-AUR-APL-2019-067061

PATIENT
  Sex: Female

DRUGS (1)
  1. LOSARTAN POTASSIUM / HYDROCHLOROTHIAZIDE TABLETS [Suspect]
     Active Substance: HYDROCHLOROTHIAZIDE\LOSARTAN POTASSIUM
     Indication: PRODUCT USED FOR UNKNOWN INDICATION
     Dosage: 1 DOSAGE FORM, WAS TAKING HALF TABLET IN THE MORNING AND IN THE EVENING
     Route: 065

REACTIONS (5)
  - Wrong technique in product usage process [Unknown]
  - Feeling abnormal [Unknown]
  - Dizziness [Unknown]
  - Head discomfort [Unknown]
  - Heart rate increased [Unknown]
